FAERS Safety Report 10905636 (Version 1)
Quarter: 2015Q1

REPORT INFORMATION
  Report Type: Spontaneous
  Country: US (occurrence: None)
  Receive Date: 20150309
  Receipt Date: 20150309
  Transmission Date: 20150721
  Serious: Yes (Disabling)
  Sender: FDA-Public Use
  Company Number: None

PATIENT
  Age: 51 Year
  Sex: Female
  Weight: 64.86 kg

DRUGS (6)
  1. HUMIRA [Concomitant]
     Active Substance: ADALIMUMAB
  2. FOLIC ACID. [Concomitant]
     Active Substance: FOLIC ACID
  3. IMURAN [Concomitant]
     Active Substance: AZATHIOPRINE
  4. ZYRTEC [Concomitant]
     Active Substance: CETIRIZINE HYDROCHLORIDE
  5. LEVAQUIN [Suspect]
     Active Substance: LEVOFLOXACIN
     Indication: PYREXIA
     Dosage: 1
     Route: 048
     Dates: start: 20141124, end: 20141130
  6. PREDNISONE. [Concomitant]
     Active Substance: PREDNISONE

REACTIONS (7)
  - Musculoskeletal disorder [None]
  - Rheumatoid arthritis [None]
  - Burning sensation [None]
  - Quality of life decreased [None]
  - Pain [None]
  - Gait disturbance [None]
  - Arthralgia [None]

NARRATIVE: CASE EVENT DATE: 20150307
